FAERS Safety Report 11849043 (Version 1)
Quarter: 2015Q4

REPORT INFORMATION
  Report Type: Spontaneous
  Country: US (occurrence: None)
  Receive Date: 20151217
  Receipt Date: 20151217
  Transmission Date: 20160305
  Serious: Yes (Hospitalization)
  Sender: FDA-Public Use
  Company Number: None

PATIENT
  Age: 67 Year
  Sex: Male
  Weight: 110.1 kg

DRUGS (1)
  1. WARFARIN [Suspect]
     Active Substance: WARFARIN
     Indication: DEEP VEIN THROMBOSIS
     Route: 048
     Dates: start: 20110930

REACTIONS (9)
  - Nausea [None]
  - Vomiting [None]
  - Dyspnoea [None]
  - Haematuria [None]
  - Anaemia [None]
  - International normalised ratio increased [None]
  - Asthenia [None]
  - Occult blood positive [None]
  - Epistaxis [None]

NARRATIVE: CASE EVENT DATE: 20151127
